FAERS Safety Report 11232281 (Version 3)
Quarter: 2015Q2

REPORT INFORMATION
  Report Type: Spontaneous
  Country: US (occurrence: None)
  Receive Date: 20150617
  Receipt Date: 20150617
  Transmission Date: 20150821
  Serious: No
  Sender: FDA-Public Use
  Company Number: 2014TASUS000436

PATIENT
  Age: 61 Year
  Sex: Female

DRUGS (7)
  1. ALLEGRA (FEXOFENADINE HYDROCHLORIDE) [Concomitant]
  2. LANSOPRAZOLE. [Concomitant]
     Active Substance: LANSOPRAZOLE
  3. AMITRIPTYLINE HCL (AMITRIPTYLINE HYDROCHLORIDE) [Concomitant]
  4. NORVASC [Concomitant]
     Active Substance: AMLODIPINE BESYLATE
  5. VITAMIN D (COLECALCIFEROL) [Concomitant]
  6. HETLIOZ [Suspect]
     Active Substance: TASIMELTEON
     Indication: INSOMNIA
     Dates: start: 20140602
  7. PREVACID [Concomitant]
     Active Substance: LANSOPRAZOLE

REACTIONS (5)
  - Hot flush [None]
  - Sleep disorder [None]
  - Poor quality sleep [None]
  - Insomnia [None]
  - Off label use [None]

NARRATIVE: CASE EVENT DATE: 2014
